FAERS Safety Report 5853733-4 (Version None)
Quarter: 2008Q3

REPORT INFORMATION
  Report Type: 
  Country: None (occurrence: None)
  Receive Date: 20080822
  Receipt Date: 20080814
  Transmission Date: 20090109
  Serious: Yes (Hospitalization)
  Sender: FDA-Public Use
  Company Number: US-AMGEN-QUU301495

PATIENT
  Sex: Female

DRUGS (2)
  1. ENBREL [Suspect]
     Indication: RHEUMATOID ARTHRITIS
     Route: 058
     Dates: start: 20070501
  2. IMURAN [Concomitant]
     Route: 048

REACTIONS (3)
  - DENTAL CARIES [None]
  - IMPAIRED HEALING [None]
  - SPINAL FUSION SURGERY [None]
